FAERS Safety Report 16167767 (Version 5)
Quarter: 2019Q2

REPORT INFORMATION
  Report Type: Report from Study
  Country: US (occurrence: US)
  Receive Date: 20190408
  Receipt Date: 20190627
  Transmission Date: 20190711
  Serious: Yes (Other)
  Sender: FDA-Public Use
  Company Number: PHEH2019US014083

PATIENT
  Age: 8 Year
  Sex: Female

DRUGS (4)
  1. ILARIS [Suspect]
     Active Substance: CANAKINUMAB
     Dosage: 300 MG, (EVERY 28 DAYS)
     Route: 058
  2. ILARIS [Suspect]
     Active Substance: CANAKINUMAB
     Indication: CRYOPYRIN ASSOCIATED PERIODIC SYNDROME
     Dosage: UNK
     Route: 058
     Dates: start: 20190329
  3. ILARIS [Suspect]
     Active Substance: CANAKINUMAB
     Indication: MUCKLE-WELLS SYNDROME
     Dosage: 150 MG, QMO (28 DAYS)
     Route: 058
     Dates: start: 20170620
  4. ILARIS [Suspect]
     Active Substance: CANAKINUMAB
     Dosage: 200 MG, QMO (EVERY 28 DAYS)
     Route: 058

REACTIONS (5)
  - Therapeutic response shortened [Not Recovered/Not Resolved]
  - Cryopyrin associated periodic syndrome [Unknown]
  - Condition aggravated [Unknown]
  - Malaise [Unknown]
  - Inappropriate schedule of product administration [Unknown]

NARRATIVE: CASE EVENT DATE: 20180329
